FAERS Safety Report 4892704-1 (Version None)
Quarter: 2006Q1

REPORT INFORMATION
  Report Type: 
  Country: None (occurrence: None)
  Receive Date: 20060125
  Receipt Date: 20060125
  Transmission Date: 20060701
  Serious: Yes (Hospitalization)
  Sender: FDA-Public Use
  Company Number: None

PATIENT
  Sex: Male

DRUGS (8)
  1. DILTIAZEM HCL [Suspect]
     Indication: ATRIAL FIBRILLATION
     Dosage: 300, QD, ORAL
     Route: 048
     Dates: end: 20050914
  2. METOPROLOL [Suspect]
     Indication: ATRIAL FIBRILLATION
     Dosage: 200, QD, ORAL
     Route: 048
     Dates: end: 20050914
  3. WARFARIN [Concomitant]
  4. FUROSEMIDE [Concomitant]
  5. ROSIGLITAZONE [Concomitant]
  6. HUMULIN 70/30 [Concomitant]
  7. AMITRIPTYLINE HCL [Concomitant]
  8. PRAVASTATIN [Concomitant]

REACTIONS (2)
  - ATRIAL FIBRILLATION [None]
  - TREATMENT NONCOMPLIANCE [None]
